FAERS Safety Report 8836648 (Version 1)
Quarter: 2012Q4

REPORT INFORMATION
  Report Type: Spontaneous
  Country: US (occurrence: None)
  Receive Date: 20121011
  Receipt Date: 20121011
  Transmission Date: 20130627
  Serious: Yes (Hospitalization)
  Sender: FDA-Public Use
  Company Number: RB-24675-2011

PATIENT
  Age: 22 Year
  Sex: Female

DRUGS (1)
  1. SUBOXONE [Suspect]
     Indication: DRUG DEPENDENCE
     Dosage: (24 mg, Sublingual Film Sublingual)
     Route: 060
     Dates: start: 201008, end: 20110314

REACTIONS (2)
  - Ligament rupture [None]
  - Procedural pain [None]
